FAERS Safety Report 8132841-1 (Version None)
Quarter: 2012Q1

REPORT INFORMATION
  Report Type: 
  Country: None (occurrence: None)
  Receive Date: 20120207
  Receipt Date: 20120126
  Transmission Date: 20120608
  Serious: Yes (Hospitalization)
  Sender: FDA-Public Use
  Company Number: AUR-APL-2012-00684

PATIENT
  Age: 18 Year
  Sex: Female

DRUGS (1)
  1. METFORMIN HCL [Suspect]
     Indication: PRODUCT USED FOR UNKNOWN INDICATION
     Dosage: 17.5 GM, ORAL
     Route: 048

REACTIONS (15)
  - KUSSMAUL RESPIRATION [None]
  - URINE OUTPUT DECREASED [None]
  - PETROLEUM DISTILLATE POISONING [None]
  - LACTIC ACIDOSIS [None]
  - OVERDOSE [None]
  - METABOLIC ACIDOSIS [None]
  - HAEMODIALYSIS [None]
  - HYPOVOLAEMIA [None]
  - RENAL FAILURE ACUTE [None]
  - OXYGEN SATURATION DECREASED [None]
  - HYPOGLYCAEMIA [None]
  - GRAND MAL CONVULSION [None]
  - ABDOMINAL TENDERNESS [None]
  - SUICIDE ATTEMPT [None]
  - HEART RATE INCREASED [None]
